FAERS Safety Report 26120327 (Version 1)
Quarter: 2025Q4

REPORT INFORMATION
  Report Type: Report from Study
  Country: CA (occurrence: CA)
  Receive Date: 20251204
  Receipt Date: 20251204
  Transmission Date: 20260117
  Serious: Yes (Other)
  Sender: ALEXION PHARMACEUTICALS
  Company Number: CA-AstraZeneca-CH-01005845A

PATIENT
  Sex: Female

DRUGS (6)
  1. TEZEPELUMAB [Suspect]
     Active Substance: TEZEPELUMAB
     Indication: Asthma
     Dosage: 210 MILLIGRAM
  2. TEZEPELUMAB [Suspect]
     Active Substance: TEZEPELUMAB
  3. BREO ELLIPTA [Concomitant]
     Active Substance: FLUTICASONE FUROATE\VILANTEROL TRIFENATATE
     Dosage: 200MCG/25MCG
     Route: 065
  4. VILANTEROL [Concomitant]
     Active Substance: VILANTEROL
     Dosage: 200MCG/25MCG 1PUFF 1X DAILY
     Route: 065
  5. TIOTROPIUM [Concomitant]
     Active Substance: TIOTROPIUM
     Dosage: 18MCG 1 CAP 1X DAILY,
     Route: 065
  6. VENTOLIN [Concomitant]
     Active Substance: ALBUTEROL SULFATE
     Dosage: 100MCG 1 PUFF 2X DAILY
     Route: 065

REACTIONS (4)
  - Kidney infection [Unknown]
  - Renal disorder [Unknown]
  - Pyrexia [Unknown]
  - Back disorder [Unknown]
